FAERS Safety Report 17087497 (Version 1)
Quarter: 2019Q4

REPORT INFORMATION
  Report Type: Report from Study
  Country: None (occurrence: US)
  Receive Date: 20191128
  Receipt Date: 20191128
  Transmission Date: 20200122
  Serious: Yes (Other)
  Sender: FDA-Public Use
  Company Number: US-ABBVIE-19K-163-2982939-00

PATIENT
  Age: 79 Year
  Sex: Female

DRUGS (1)
  1. DUOPA [Suspect]
     Active Substance: CARBIDOPA\LEVODOPA
     Indication: PARKINSON^S DISEASE
     Route: 050

REACTIONS (7)
  - Muscle tightness [Recovering/Resolving]
  - Paraesthesia [Recovering/Resolving]
  - Stoma site erythema [Recovering/Resolving]
  - Medical procedure [Unknown]
  - Muscle rigidity [Recovering/Resolving]
  - Stoma site pain [Not Recovered/Not Resolved]
  - Gastritis [Unknown]

NARRATIVE: CASE EVENT DATE: 20191009
